FAERS Safety Report 5779623-3 (Version None)
Quarter: 2008Q2

REPORT INFORMATION
  Report Type: 
  Country: None (occurrence: None)
  Receive Date: 20080619
  Receipt Date: 20080609
  Transmission Date: 20081010
  Serious: Yes (Other)
  Sender: FDA-Public Use
  Company Number: TR-PFIZER INC-2008049442

PATIENT
  Age: 58 Year
  Sex: Male

DRUGS (5)
  1. ATORVASTATIN [Suspect]
     Indication: CORONARY ARTERY DISEASE
  2. FENOFIBRATE [Interacting]
     Indication: HYPERTRIGLYCERIDAEMIA
  3. ASPIRIN [Concomitant]
     Indication: CORONARY ARTERY DISEASE
  4. ACE INHIBITOR NOS [Concomitant]
     Indication: CORONARY ARTERY DISEASE
  5. BETA BLOCKING AGENTS [Concomitant]
     Indication: CORONARY ARTERY DISEASE

REACTIONS (2)
  - DRUG INTERACTION [None]
  - RENAL FAILURE ACUTE [None]
